FAERS Safety Report 9334092 (Version 2)
Quarter: 2014Q1

REPORT INFORMATION
  Report Type: Spontaneous
  Country: GB (occurrence: None)
  Receive Date: 20130604
  Receipt Date: 20140304
  Transmission Date: 20141002
  Serious: Yes (Other)
  Sender: FDA-Public Use
  Company Number: AUR-APL-2013-04478

PATIENT
  Age: 8 Year
  Sex: Male

DRUGS (2)
  1. MODAFINIL [Suspect]
     Indication: NARCOLEPSY
  2. H1N1INFLUENZA VACCINE [Suspect]
     Indication: ANTIVIRAL PROPHYLAXIS
     Dosage: 1 DOSAGE FORMS (1 DOSAGE FORMS, 1 IN 1 D), UNKNOWN
     Dates: start: 20100203, end: 20100203

REACTIONS (13)
  - Narcolepsy [None]
  - Cataplexy [None]
  - Hallucination [None]
  - Eye movement disorder [None]
  - Fall [None]
  - Hypotonia [None]
  - Fatigue [None]
  - Weight increased [None]
  - Psychiatric symptom [None]
  - Aggression [None]
  - Family stress [None]
  - Constipation [None]
  - Gastrointestinal motility disorder [None]
